FAERS Safety Report 8872610 (Version 2)
Quarter: 2012Q4

REPORT INFORMATION
  Report Type: 
  Country: US (occurrence: None)
  Receive Date: 20121031
  Receipt Date: 20121114
  Transmission Date: 20130627
  Serious: Yes (Death)
  Sender: FDA-Public Use
  Company Number: None

PATIENT
  Age: 55 Year
  Sex: Male
  Weight: 49.9 kg

DRUGS (1)
  1. POTASSIUM CHLORIDE [Suspect]

REACTIONS (2)
  - Pneumonia [None]
  - Respiratory failure [None]
